FAERS Safety Report 14466334 (Version 1)
Quarter: 2018Q1

REPORT INFORMATION
  Report Type: Spontaneous
  Country: US (occurrence: US)
  Receive Date: 20180131
  Receipt Date: 20180131
  Transmission Date: 20180509
  Serious: Yes (Hospitalization, Other)
  Sender: FDA-Public Use
  Company Number: US-AUROBINDO-AUR-APL-2018-003620

PATIENT
  Age: 66 Year
  Sex: Female

DRUGS (1)
  1. OXYCODONE AND ACETAMINOPHEN TABLETS USP, 10 MG/325 MG [Suspect]
     Active Substance: ACETAMINOPHEN\OXYCODONE HYDROCHLORIDE
     Indication: PRODUCT USED FOR UNKNOWN INDICATION
     Route: 065

REACTIONS (15)
  - Stress cardiomyopathy [Recovered/Resolved]
  - Abdominal pain upper [Unknown]
  - Chest pain [Unknown]
  - Hyperhidrosis [Unknown]
  - Respiratory distress [Unknown]
  - Tachycardia [Unknown]
  - Pallor [Unknown]
  - Agitation [Unknown]
  - Atrial fibrillation [Unknown]
  - Respiratory acidosis [Unknown]
  - Anxiety [Unknown]
  - Pericardial effusion [Unknown]
  - Drug withdrawal syndrome [Recovered/Resolved]
  - Drug dependence [Unknown]
  - Cardiac tamponade [Unknown]
